FAERS Safety Report 12925291 (Version 7)
Quarter: 2017Q1

REPORT INFORMATION
  Report Type: Report from Study
  Country: GB (occurrence: GB)
  Receive Date: 20161109
  Receipt Date: 20170203
  Transmission Date: 20170428
  Serious: Yes (Hospitalization)
  Sender: FDA-Public Use
  Company Number: GB-PFIZER INC-2016490924

PATIENT
  Age: 85 Year
  Sex: Male
  Weight: 79 kg

DRUGS (18)
  1. FOLIC ACID. [Concomitant]
     Active Substance: FOLIC ACID
     Indication: SUPPLEMENTATION THERAPY
     Dosage: 5 MG, 1X/DAY
     Route: 048
  2. FINASTERIDE. [Concomitant]
     Active Substance: FINASTERIDE
     Indication: PROSTATOMEGALY
     Dosage: 5 MG, 1X/DAY
     Route: 048
  3. DOUBLEBASE [Concomitant]
     Active Substance: ISOPROPYL MYRISTATE\PARAFFIN
     Indication: DRY SKIN
     Dosage: UNK UNK, 2X/DAY
     Route: 061
  4. VINCRISTINE SULFATE. [Suspect]
     Active Substance: VINCRISTINE SULFATE
     Indication: DIFFUSE LARGE B-CELL LYMPHOMA
     Dosage: 2 MG, 3 TIMES WEEKLY
     Route: 042
     Dates: start: 20160331, end: 20161006
  5. ATORVASTATIN [Concomitant]
     Active Substance: ATORVASTATIN
     Indication: BLOOD CHOLESTEROL INCREASED
     Dosage: 10 MG, 1X/DAY
     Route: 048
  6. ALLOPURINOL. [Concomitant]
     Active Substance: ALLOPURINOL
     Indication: PROPHYLAXIS
     Dosage: 300 MG, 1X/DAY
     Route: 048
  7. CYCLOPHOSPHAMIDE. [Suspect]
     Active Substance: CYCLOPHOSPHAMIDE
     Indication: DIFFUSE LARGE B-CELL LYMPHOMA
     Dosage: 1500 MG, 3 TIMES WEEKLY
     Route: 042
     Dates: start: 20160331
  8. DALTEPARIN [Concomitant]
     Active Substance: DALTEPARIN
     Indication: ANTICOAGULANT THERAPY
     Dosage: 15000 IU, 1X/DAY
     Route: 058
  9. SERETIDE [Concomitant]
     Active Substance: FLUTICASONE PROPIONATE\SALMETEROL XINAFOATE
     Indication: ASTHMA
     Dosage: 125 UG, AS NEEDED
     Route: 055
  10. ALENDRONIC ACID [Concomitant]
     Active Substance: ALENDRONIC ACID
     Indication: OSTEOPOROSIS
     Dosage: 70 MG, WEEKLY
     Route: 048
  11. ACICLOVIR [Concomitant]
     Active Substance: ACYCLOVIR
     Indication: ANTIVIRAL PROPHYLAXIS
     Dosage: 800 MG, 2X/DAY
     Route: 048
  12. LENOGRASTIM [Concomitant]
     Active Substance: LENOGRASTIM
     Indication: PROPHYLAXIS
     Dosage: 263 UG, 9 DAYS EVERY 3 WEEKS
     Route: 058
  13. INOTUZUMAB OZOGAMICIN [Suspect]
     Active Substance: INOTUZUMAB OZOGAMICIN
     Indication: DIFFUSE LARGE B-CELL LYMPHOMA
     Dosage: 1.6 MG, (3 TIMES WEEKLY)
     Route: 042
  14. CHLORPHENIRAMINE /00072501/ [Concomitant]
     Active Substance: CHLORPHENIRAMINE
     Indication: PROPHYLAXIS
     Dosage: 100 MG, 1X/DAY
     Route: 042
  15. PREDNISOLONE. [Suspect]
     Active Substance: PREDNISOLONE
     Indication: DIFFUSE LARGE B-CELL LYMPHOMA
     Dosage: 100 MG, 3 TIMES WEEKLY
     Route: 048
     Dates: start: 20160331, end: 20161010
  16. MABTHERA [Suspect]
     Active Substance: RITUXIMAB
     Indication: DIFFUSE LARGE B-CELL LYMPHOMA
     Dosage: 800 MG, 3 TIMES WEEKLY
     Route: 042
     Dates: start: 20160331, end: 20161006
  17. OMEPRAZOLE. [Concomitant]
     Active Substance: OMEPRAZOLE
     Indication: PROPHYLAXIS
     Dosage: 20 MG, 1X/DAY
     Route: 048
  18. PARACETAMOL [Concomitant]
     Active Substance: ACETAMINOPHEN
     Indication: PROPHYLAXIS
     Dosage: 1 G, 1X/DAY
     Route: 048

REACTIONS (2)
  - Malaise [Recovered/Resolved]
  - Decreased appetite [Recovered/Resolved]

NARRATIVE: CASE EVENT DATE: 20161015
